FAERS Safety Report 15693593 (Version 7)
Quarter: 2020Q1

REPORT INFORMATION
  Report Type: Spontaneous
  Country: DE (occurrence: DE)
  Receive Date: 20181206
  Receipt Date: 20200318
  Transmission Date: 20200409
  Serious: Yes (Hospitalization, Disabling, Other)
  Sender: FDA-Public Use
  Company Number: DE-AUROBINDO-AUR-APL-2018-058784

PATIENT
  Sex: Male

DRUGS (20)
  1. IBUPROFEN. [Concomitant]
     Active Substance: IBUPROFEN
     Dosage: 1200 MILLIGRAM, ONCE A DAY, TID (1-1-1)
     Route: 065
     Dates: start: 20160415
  2. VALSARTAN 1A PHARMA [Suspect]
     Active Substance: VALSARTAN
     Indication: HYPERTENSION
     Dosage: 160 MILLIGRAM
     Route: 065
  3. VERGENTAN [Concomitant]
     Active Substance: ALIZAPRIDE HYDROCHLORIDE
     Indication: PRODUCT USED FOR UNKNOWN INDICATION
     Dosage: 3 UNK, ONCE A DAY (UNK UNK, TID (1-1-1))
     Route: 065
  4. VALSARTAN FILM-COATED TABLET [Suspect]
     Active Substance: VALSARTAN
     Indication: HYPERTENSION
     Dosage: 160 MILLIGRAM, ONCE A DAY
     Route: 065
  5. VALSARTAN HEXAL [Suspect]
     Active Substance: VALSARTAN
     Indication: HYPERTENSION
     Dosage: 160 MILLIGRAM
     Route: 065
     Dates: start: 2012
  6. BEPANTHEN [Concomitant]
     Indication: PRODUCT USED FOR UNKNOWN INDICATION
     Dosage: UNK
     Route: 065
  7. REMESTAN [Concomitant]
     Active Substance: TEMAZEPAM
     Indication: PRODUCT USED FOR UNKNOWN INDICATION
     Dosage: UNK UNK, QD (0-0-0-1)
     Route: 065
  8. NOVAMINSULFON [Concomitant]
     Active Substance: METAMIZOLE
     Indication: PRODUCT USED FOR UNKNOWN INDICATION
     Dosage: 30 GTT DROPS, FOUR TIMES/DAY
     Route: 065
  9. NEBIVOLOL. [Concomitant]
     Active Substance: NEBIVOLOL
     Indication: PRODUCT USED FOR UNKNOWN INDICATION
     Dosage: 2.5 MILLIGRAM, ONCE A DAY (1-0-0)
     Route: 065
  10. MCP [Concomitant]
     Active Substance: METOCLOPRAMIDE HYDROCHLORIDE
     Indication: PRODUCT USED FOR UNKNOWN INDICATION
     Dosage: 3 UNK, ONCE A DAY (UNK UNK, TID (1-1-1))
     Route: 065
  11. PLANUM [Concomitant]
     Indication: PRODUCT USED FOR UNKNOWN INDICATION
     Dosage: UNK
     Route: 065
     Dates: start: 20160421
  12. VALSACOR [Suspect]
     Active Substance: VALSARTAN
     Indication: HYPERTENSION
     Dosage: 160 MILLIGRAM, ONCE A DAY
     Route: 065
  13. NEBIVOLOL. [Concomitant]
     Active Substance: NEBIVOLOL
     Dosage: 5 MILLIGRAM, ONCE A DAY (1-0-0)
     Route: 065
     Dates: start: 2016
  14. MUCOFALK [Concomitant]
     Indication: CONSTIPATION PROPHYLAXIS
     Dosage: UNK
     Route: 065
     Dates: start: 2016
  15. NOVALGIN [Concomitant]
     Dosage: 40 GTT DROPS 5 TIMES A DAY
     Route: 065
     Dates: start: 20160415
  16. METAMIZOLE [Concomitant]
     Active Substance: METAMIZOLE
     Indication: PRODUCT USED FOR UNKNOWN INDICATION
     Dosage: 30 DROP, FOUR TIMES/DAY (120 DROP, ONCE A DAY)
     Route: 065
  17. RANITIDIN [Concomitant]
     Active Substance: RANITIDINE HYDROCHLORIDE
     Indication: PRODUCT USED FOR UNKNOWN INDICATION
     Dosage: 300 MILLIGRAM, ONCE A DAY (1-0-0)
     Route: 065
  18. IBUPROFEN. [Concomitant]
     Active Substance: IBUPROFEN
     Indication: POSTOPERATIVE CARE
     Dosage: 600 MILLIGRAM, PRN
     Route: 065
  19. TEMAZEPAM. [Concomitant]
     Active Substance: TEMAZEPAM
     Indication: PRODUCT USED FOR UNKNOWN INDICATION
     Dosage: UNK
     Route: 065
  20. NOVALGIN [Concomitant]
     Indication: POSTOPERATIVE CARE
     Dosage: 40 DROP, (ON DEMAND)
     Route: 065

REACTIONS (34)
  - Monocyte count increased [Unknown]
  - Pyrexia [Unknown]
  - Anorectal discomfort [Unknown]
  - Pain [Unknown]
  - Anal cancer [Unknown]
  - Lymphocyte count decreased [Unknown]
  - Fear of death [Not Recovered/Not Resolved]
  - Defaecation urgency [Not Recovered/Not Resolved]
  - Neutrophil count increased [Unknown]
  - Impaired quality of life [Unknown]
  - Dyschezia [Unknown]
  - Anal ulcer [Unknown]
  - Haemorrhoids [Unknown]
  - Glaucoma [Unknown]
  - Anxiety disorder [Unknown]
  - Squamous cell carcinoma [Unknown]
  - Skin maceration [Unknown]
  - Inflammation [Unknown]
  - Anal inflammation [Unknown]
  - Gastrointestinal motility disorder [Unknown]
  - Anal infection [Unknown]
  - Anal pruritus [Unknown]
  - Proctalgia [Unknown]
  - Radiation skin injury [Unknown]
  - Abdominal pain upper [Unknown]
  - Anal squamous cell carcinoma [Unknown]
  - Feeling abnormal [Unknown]
  - Mental disorder [Not Recovered/Not Resolved]
  - Anal cancer stage 0 [Unknown]
  - Oropharyngeal pain [Unknown]
  - Dermatitis [Unknown]
  - C-reactive protein increased [Unknown]
  - Stevens-Johnson syndrome [Unknown]
  - Haematochezia [Unknown]

NARRATIVE: CASE EVENT DATE: 2014
